FAERS Safety Report 7914761-8 (Version None)
Quarter: 2011Q4

REPORT INFORMATION
  Report Type: 
  Country: None (occurrence: None)
  Receive Date: 20111115
  Receipt Date: 20111111
  Transmission Date: 20120403
  Serious: No
  Sender: FDA-Public Use
  Company Number: PHHY2011CZ097649

PATIENT
  Sex: Male

DRUGS (1)
  1. EXTAVIA [Suspect]
     Indication: MULTIPLE SCLEROSIS
     Dosage: UNK UKN, UNK
     Route: 058
     Dates: start: 20101108

REACTIONS (2)
  - INJECTION SITE REACTION [None]
  - WRONG TECHNIQUE IN DRUG USAGE PROCESS [None]
